FAERS Safety Report 9511980 (Version 1)
Quarter: 2013Q3

REPORT INFORMATION
  Report Type: Spontaneous
  Country: AU (occurrence: AU)
  Receive Date: 20130910
  Receipt Date: 20130910
  Transmission Date: 20140515
  Serious: Yes (Hospitalization)
  Sender: FDA-Public Use
  Company Number: PHHY2013AU097757

PATIENT
  Sex: Female

DRUGS (3)
  1. TEGRETOL [Suspect]
     Indication: PAIN IN EXTREMITY
     Dosage: 2 DF, ONE IN MORNING AND ONE AT NIGHT
  2. TEGRETOL [Suspect]
     Dosage: 2 DF, PRN (AT ONCE)
  3. OROXINE [Concomitant]
     Dosage: UNK UKN, UNK

REACTIONS (8)
  - Loss of consciousness [Recovering/Resolving]
  - Aggression [Unknown]
  - Vomiting [Recovering/Resolving]
  - Abasia [Unknown]
  - Hypersensitivity [Unknown]
  - Dizziness [Unknown]
  - Fatigue [Unknown]
  - Nausea [Unknown]
